FAERS Safety Report 5595326-2 (Version None)
Quarter: 2008Q1

REPORT INFORMATION
  Report Type: 
  Country: None (occurrence: None)
  Receive Date: 20080117
  Receipt Date: 20080107
  Transmission Date: 20080703
  Serious: Yes (Other)
  Sender: FDA-Public Use
  Company Number: NL-PFIZER INC-2008003878

PATIENT
  Sex: Male

DRUGS (3)
  1. LIPITOR [Suspect]
     Indication: DYSLIPIDAEMIA
     Route: 048
  2. SERETIDE [Concomitant]
     Dosage: TEXT:50/250
  3. COZAAR [Concomitant]

REACTIONS (2)
  - ABDOMINAL DISTENSION [None]
  - HAEMATOCHEZIA [None]
